FAERS Safety Report 15311110 (Version 4)
Quarter: 2019Q2

REPORT INFORMATION
  Report Type: Spontaneous
  Country: JP (occurrence: JP)
  Receive Date: 20180823
  Receipt Date: 20190629
  Transmission Date: 20190711
  Serious: Yes (Hospitalization, Other)
  Sender: FDA-Public Use
  Company Number: JP-009507513-1806JPN002294J

PATIENT
  Age: 74 Year
  Sex: Male

DRUGS (1)
  1. KEYTRUDA [Suspect]
     Active Substance: PEMBROLIZUMAB
     Indication: NON-SMALL CELL LUNG CANCER
     Dosage: 200 MG, Q3W
     Route: 041
     Dates: start: 20170815, end: 20180227

REACTIONS (4)
  - Febrile neutropenia [Unknown]
  - Duodenitis [Recovering/Resolving]
  - Malignant neoplasm progression [Unknown]
  - Chronic gastritis [Unknown]

NARRATIVE: CASE EVENT DATE: 201806
